FAERS Safety Report 9649701 (Version 1)
Quarter: 2013Q4

REPORT INFORMATION
  Report Type: Spontaneous
  Country: CA (occurrence: CA)
  Receive Date: 20131028
  Receipt Date: 20131028
  Transmission Date: 20140711
  Serious: Yes (Other)
  Sender: FDA-Public Use
  Company Number: PHHY2013CA119071

PATIENT
  Sex: Female

DRUGS (5)
  1. TIMOLOL SANDOZ [Suspect]
     Indication: GLAUCOMA
     Dosage: 1 DRP, QD
     Route: 047
     Dates: start: 201306
  2. SYNTHROID [Concomitant]
  3. INDERAL [Concomitant]
  4. DIOVAN [Concomitant]
  5. CRESTOR [Concomitant]
     Dosage: 5 MG, UNK

REACTIONS (1)
  - Renal failure [Unknown]
